FAERS Safety Report 9798346 (Version 1)
Quarter: 2013Q4

REPORT INFORMATION
  Report Type: Spontaneous
  Country: IT (occurrence: None)
  Receive Date: 20131231
  Receipt Date: 20131231
  Transmission Date: 20140711
  Serious: Yes (Hospitalization)
  Sender: FDA-Public Use
  Company Number: 2099223

PATIENT
  Age: 74 Year
  Sex: Female

DRUGS (5)
  1. PACLITAXEL [Suspect]
     Indication: BREAST CANCER
     Dosage: 100 MG MILLIGRAM(S), CYCLICAL, INTRAVENOUS
     Route: 042
     Dates: start: 20130920, end: 20131021
  2. EUTIROX [Concomitant]
  3. ADALAT CRONO [Concomitant]
  4. PLAUNAC [Concomitant]
  5. TIKLID [Concomitant]

REACTIONS (2)
  - Myocardial ischaemia [None]
  - Supraventricular tachyarrhythmia [None]
